FAERS Safety Report 8282475-3 (Version None)
Quarter: 2012Q2

REPORT INFORMATION
  Report Type: 
  Country: None (occurrence: None)
  Receive Date: 20120413
  Receipt Date: 20120409
  Transmission Date: 20120825
  Serious: Yes (Other)
  Sender: FDA-Public Use
  Company Number: US-AMGEN-QUU426485

PATIENT
  Age: 57 Year
  Sex: Male
  Weight: 75.283 kg

DRUGS (15)
  1. ENBREL [Suspect]
     Indication: RHEUMATOID ARTHRITIS
     Dosage: 50 MG, QWK
     Route: 058
     Dates: start: 20050101, end: 20090101
  2. ZOFRAN [Concomitant]
  3. SUCRALFATE [Concomitant]
     Dosage: 1 G, UNK
     Route: 048
  4. ACIPHEX [Concomitant]
     Dosage: 20 MG, UNK
     Route: 048
  5. FOLVITE                            /00024201/ [Concomitant]
  6. PERCOCET [Concomitant]
  7. ZOCOR [Concomitant]
  8. BENTYL [Concomitant]
  9. LOPID [Concomitant]
     Dosage: 600 MG, BID
  10. PLAQUENIL [Concomitant]
  11. DELTASONE                          /00044701/ [Concomitant]
  12. METHOTREXATE [Suspect]
     Indication: PRODUCT USED FOR UNKNOWN INDICATION
  13. ULTRAM [Concomitant]
  14. LOMOTIL [Concomitant]
  15. PRILOSEC [Concomitant]
     Indication: GASTROOESOPHAGEAL REFLUX DISEASE
     Dosage: 20 MG, UNK
     Dates: start: 20070101

REACTIONS (16)
  - COLON CANCER [None]
  - LIGAMENT RUPTURE [None]
  - DIZZINESS [None]
  - NEPHROLITHIASIS [None]
  - LIVER FUNCTION TEST ABNORMAL [None]
  - ROTATOR CUFF SYNDROME [None]
  - PROSTATOMEGALY [None]
  - HYPOAESTHESIA [None]
  - RHEUMATOID ARTHRITIS [None]
  - ONYCHOMYCOSIS [None]
  - DIARRHOEA [None]
  - PARAESTHESIA [None]
  - ANTI-CYCLIC CITRULLINATED PEPTIDE ANTIBODY POSITIVE [None]
  - NIGHT SWEATS [None]
  - JOINT CREPITATION [None]
  - PALMAR-PLANTAR ERYTHRODYSAESTHESIA SYNDROME [None]
